FAERS Safety Report 9132775 (Version 1)
Quarter: 2013Q1

REPORT INFORMATION
  Report Type: Spontaneous
  Country: CA (occurrence: CA)
  Receive Date: 20130301
  Receipt Date: 20130301
  Transmission Date: 20140127
  Serious: Yes (Death, Other)
  Sender: FDA-Public Use
  Company Number: CA-PURDUE-CAN-2013-0003812

PATIENT
  Age: 55 Year
  Sex: Male

DRUGS (4)
  1. OXYCONTIN TABLETS [Suspect]
     Indication: PAIN
     Dosage: UNK
     Route: 065
  2. OXYCONTIN TABLETS [Suspect]
     Indication: PRODUCT USED FOR UNKNOWN INDICATION
  3. COCAINE [Suspect]
     Indication: PRODUCT USED FOR UNKNOWN INDICATION
     Dosage: UNK
     Route: 065
  4. OTHER DRUGS (UNSPECIFIED) [Suspect]
     Indication: PRODUCT USED FOR UNKNOWN INDICATION
     Dosage: UNK
     Route: 065

REACTIONS (4)
  - Completed suicide [Fatal]
  - Drug dependence [Unknown]
  - Substance abuse [Unknown]
  - Drug withdrawal syndrome [Unknown]
